FAERS Safety Report 18502271 (Version 1)
Quarter: 2020Q4

REPORT INFORMATION
  Report Type: Other
  Country: US (occurrence: US)
  Receive Date: 20201113
  Receipt Date: 20201113
  Transmission Date: 20210114
  Serious: Yes (Other)
  Sender: FDA-Public Use
  Company Number: US-ROCHE-2709791

PATIENT

DRUGS (1)
  1. COBIMETINIB. [Suspect]
     Active Substance: COBIMETINIB
     Indication: NEOPLASM
     Dosage: 40 MG DAILY OR 60 MG EITHER DAILY (21 DAYS ON, 7 OFF ) OR TWICE WEEKLY ON D1,D2.
     Route: 065

REACTIONS (4)
  - Thrombocytopenia [Unknown]
  - Vision blurred [Unknown]
  - Diarrhoea [Unknown]
  - Retinopathy [Unknown]
